FAERS Safety Report 10778091 (Version 6)
Quarter: 2017Q1

REPORT INFORMATION
  Report Type: Report from Study
  Country: FR (occurrence: FR)
  Receive Date: 20150209
  Receipt Date: 20170111
  Transmission Date: 20170428
  Serious: Yes (Other)
  Sender: FDA-Public Use
  Company Number: FR-JAZZ-JPI-P-008784

PATIENT
  Age: 81 Year
  Sex: Male
  Weight: 78 kg

DRUGS (8)
  1. GABAPENTIN. [Concomitant]
     Active Substance: GABAPENTIN
     Indication: PRODUCT USED FOR UNKNOWN INDICATION
  2. XYREM [Suspect]
     Active Substance: SODIUM OXYBATE
     Indication: NARCOLEPSY
     Dosage: 2 G, BID
     Route: 048
     Dates: start: 20091005
  3. XYREM [Suspect]
     Active Substance: SODIUM OXYBATE
     Dosage: 2.25 G, BID
     Route: 048
     Dates: start: 20100118, end: 201011
  4. XYREM [Suspect]
     Active Substance: SODIUM OXYBATE
     Dosage: 3 G, QD
     Route: 048
     Dates: start: 20161101, end: 20161130
  5. SIFROL [Suspect]
     Active Substance: PRAMIPEXOLE
     Indication: RESTLESS LEGS SYNDROME
     Route: 048
  6. XYREM [Suspect]
     Active Substance: SODIUM OXYBATE
     Dosage: 3 G, QD
     Route: 048
     Dates: start: 20161010
  7. XYREM [Suspect]
     Active Substance: SODIUM OXYBATE
     Indication: CATAPLEXY
     Dosage: 2.25 G, BID
     Route: 048
     Dates: start: 20090824, end: 20091004
  8. XYREM [Suspect]
     Active Substance: SODIUM OXYBATE
     Dosage: 3 G, BID
     Route: 048
     Dates: start: 20101107

REACTIONS (20)
  - Balance disorder [Recovered/Resolved]
  - Fatigue [Recovered/Resolved]
  - Drug dose omission [Unknown]
  - Sleep disorder [Unknown]
  - Somnambulism [Unknown]
  - Cataplexy [Not Recovered/Not Resolved]
  - Fall [Unknown]
  - Tremor [Unknown]
  - Muscular weakness [Unknown]
  - Skin injury [Unknown]
  - Disorientation [Recovered/Resolved]
  - Bladder cancer stage III [Unknown]
  - Haemorrhage [Unknown]
  - Fracture [Unknown]
  - Restless legs syndrome [Recovered/Resolved]
  - Vertigo [Unknown]
  - Insomnia [Recovered/Resolved]
  - Muscle contractions involuntary [Recovered/Resolved]
  - Somnolence [Unknown]
  - Dizziness [Recovered/Resolved]

NARRATIVE: CASE EVENT DATE: 20090825
